FAERS Safety Report 6992677-1 (Version None)
Quarter: 2010Q3

REPORT INFORMATION
  Report Type: 
  Country: None (occurrence: None)
  Receive Date: 20100917
  Receipt Date: 20100909
  Transmission Date: 20110219
  Serious: Yes (Other)
  Sender: FDA-Public Use
  Company Number: B0674721A

PATIENT
  Age: 31 Year
  Sex: Female

DRUGS (1)
  1. CIGANON CQ1 [Suspect]
     Dosage: 1PAT SINGLE DOSE
     Route: 062
     Dates: start: 20100907, end: 20100907

REACTIONS (8)
  - APPLICATION SITE PRURITUS [None]
  - DIARRHOEA [None]
  - DIZZINESS [None]
  - HEADACHE [None]
  - NAUSEA [None]
  - TOBACCO POISONING [None]
  - TREMOR [None]
  - VOMITING [None]
